FAERS Safety Report 6732887-1 (Version None)
Quarter: 2010Q2

REPORT INFORMATION
  Report Type: 
  Country: None (occurrence: None)
  Receive Date: 20100519
  Receipt Date: 20100507
  Transmission Date: 20101027
  Serious: Yes (Other)
  Sender: FDA-Public Use
  Company Number: TW-WATSON-2010-06621

PATIENT
  Age: 48 Year
  Sex: Female

DRUGS (2)
  1. MIRTAZAPINE [Suspect]
     Indication: SUICIDE ATTEMPT
     Dosage: 30 MG, DAILY
  2. VENLAFAXINE [Suspect]
     Indication: SUICIDE ATTEMPT
     Dosage: 150 MG, DAILY

REACTIONS (1)
  - ANGIOEDEMA [None]
